FAERS Safety Report 24046225 (Version 2)
Quarter: 2024Q3

REPORT INFORMATION
  Report Type: Spontaneous
  Country: US (occurrence: US)
  Receive Date: 20240703
  Receipt Date: 20240905
  Transmission Date: 20241017
  Serious: Yes (Other)
  Sender: NOVARTIS
  Company Number: US-002147023-NVSC2024US135504

PATIENT
  Age: 51 Year
  Sex: Female
  Weight: 109 kg

DRUGS (1)
  1. COSENTYX [Suspect]
     Active Substance: SECUKINUMAB
     Indication: Ankylosing spondylitis
     Dosage: 150 MILLIGRAM PER MILLILITRE, Q4W
     Route: 058
     Dates: end: 20240524

REACTIONS (6)
  - Ankylosing spondylitis [Unknown]
  - Arthralgia [Unknown]
  - Muscle spasms [Unknown]
  - Migraine [Unknown]
  - Joint swelling [Unknown]
  - Feeling abnormal [Unknown]

NARRATIVE: CASE EVENT DATE: 20240524
